FAERS Safety Report 7640039-6 (Version None)
Quarter: 2011Q3

REPORT INFORMATION
  Report Type: 
  Country: None (occurrence: None)
  Receive Date: 20110727
  Receipt Date: 20110714
  Transmission Date: 20111222
  Serious: Yes (Other)
  Sender: FDA-Public Use
  Company Number: GB-ASTRAZENECA-2011SE40705

PATIENT
  Age: 58 Year
  Sex: Female

DRUGS (2)
  1. FASLODEX [Suspect]
     Indication: BREAST CANCER
     Route: 030
  2. LAPATINIB [Suspect]
     Route: 065

REACTIONS (5)
  - MALAISE [None]
  - BACK PAIN [None]
  - EPISTAXIS [None]
  - SCAB [None]
  - DYSPNOEA [None]
